FAERS Safety Report 6708886-2 (Version None)
Quarter: 2010Q2

REPORT INFORMATION
  Report Type: 
  Country: None (occurrence: None)
  Receive Date: 20100504
  Receipt Date: 20100423
  Transmission Date: 20101027
  Serious: Yes (Other)
  Sender: FDA-Public Use
  Company Number: BR-JNJFOC-20100406858

PATIENT
  Age: 80 Year
  Sex: Female

DRUGS (2)
  1. REMINYL ER [Suspect]
     Indication: DRUG USE FOR UNKNOWN INDICATION
     Route: 065
  2. REMINYL ER [Suspect]
     Route: 065

REACTIONS (4)
  - CONFUSIONAL STATE [None]
  - DECREASED ACTIVITY [None]
  - DYSENTERY [None]
  - SOMNOLENCE [None]
